FAERS Safety Report 4504639-4 (Version None)
Quarter: 2004Q4

REPORT INFORMATION
  Report Type: 
  Country: None (occurrence: None)
  Receive Date: 20041116
  Receipt Date: 20041028
  Transmission Date: 20050328
  Serious: Yes (Hospitalization)
  Sender: FDA-Public Use
  Company Number: S04-BRA-07037-01

PATIENT
  Age: 30 Year
  Sex: Female

DRUGS (3)
  1. LEXAPRO [Suspect]
     Indication: ANTIDEPRESSANT THERAPY
     Dosage: 10 MG QD PO
     Route: 048
     Dates: start: 20040827
  2. ALCOHOL (ETHANOL) (ALCOHOL) [Suspect]
     Dates: start: 20040912, end: 20040912
  3. CLONAZEPAM [Concomitant]

REACTIONS (5)
  - ALCOHOL USE [None]
  - COMA [None]
  - HALLUCINATION [None]
  - LOSS OF CONSCIOUSNESS [None]
  - UNEVALUABLE EVENT [None]
